FAERS Safety Report 11382286 (Version 1)
Quarter: 2015Q3

REPORT INFORMATION
  Report Type: Spontaneous
  Country: US (occurrence: US)
  Receive Date: 20150811
  Receipt Date: 20150811
  Transmission Date: 20151125
  Serious: No
  Sender: FDA-Public Use
  Company Number: US-ELI_LILLY_AND_COMPANY-US201004001966

PATIENT
  Age: 62 Year
  Sex: Male
  Weight: 88.64 kg

DRUGS (2)
  1. ANDROGEL [Concomitant]
     Active Substance: TESTOSTERONE
     Indication: BLOOD TESTOSTERONE DECREASED
     Dosage: 5 G, DAILY (1/D)
     Route: 062
     Dates: start: 20100318
  2. CIALIS [Suspect]
     Active Substance: TADALAFIL
     Dosage: 1 D/F, DAILY (1/D)
     Dates: start: 20100319, end: 20100323

REACTIONS (2)
  - Muscle strain [Not Recovered/Not Resolved]
  - Back pain [Not Recovered/Not Resolved]

NARRATIVE: CASE EVENT DATE: 201003
